FAERS Safety Report 14526640 (Version 3)
Quarter: 2018Q4

REPORT INFORMATION
  Report Type: Spontaneous
  Country: US (occurrence: US)
  Receive Date: 20180213
  Receipt Date: 20181213
  Transmission Date: 20190204
  Serious: Yes (Hospitalization, Other)
  Sender: FDA-Public Use
  Company Number: US-JNJFOC-20180216547

PATIENT
  Age: 65 Year
  Sex: Male

DRUGS (3)
  1. INVOKANA [Suspect]
     Active Substance: CANAGLIFLOZIN
     Indication: TYPE 2 DIABETES MELLITUS
     Route: 048
     Dates: start: 201408
  2. INVOKANA [Suspect]
     Active Substance: CANAGLIFLOZIN
     Indication: TYPE 2 DIABETES MELLITUS
     Route: 048
     Dates: end: 201611
  3. INVOKANA [Suspect]
     Active Substance: CANAGLIFLOZIN
     Indication: TYPE 2 DIABETES MELLITUS
     Route: 048
     Dates: start: 20150907

REACTIONS (6)
  - Osteomyelitis chronic [Unknown]
  - Acute kidney injury [Recovered/Resolved]
  - Metatarsal excision [Unknown]
  - Diabetic foot infection [Not Recovered/Not Resolved]
  - Skin ulcer [Unknown]
  - Toe amputation [Unknown]

NARRATIVE: CASE EVENT DATE: 2015
